FAERS Safety Report 10051035 (Version 3)
Quarter: 2014Q2

REPORT INFORMATION
  Report Type: Spontaneous
  Country: JP (occurrence: JP)
  Receive Date: 20140401
  Receipt Date: 20140401
  Transmission Date: 20141212
  Serious: Yes (Hospitalization, Other)
  Sender: FDA-Public Use
  Company Number: JP-BAYER-2014-038919

PATIENT
  Age: 81 Year
  Sex: Male

DRUGS (2)
  1. BAYASPIRIN [Suspect]
     Indication: EMBOLISM ARTERIAL
     Dosage: UNK
     Route: 048
     Dates: start: 201309
  2. CILOSTAZOL [Interacting]
     Indication: EMBOLISM ARTERIAL
     Dosage: UNK
     Route: 048
     Dates: start: 201309

REACTIONS (7)
  - Gastrointestinal haemorrhage [Recovered/Resolved]
  - Cholecystitis acute [Recovered/Resolved]
  - Pancreatic enlargement [None]
  - Pancreatic enzymes increased [None]
  - Pancreatic pseudocyst [None]
  - Aneurysm [Recovered/Resolved]
  - Labelled drug-drug interaction medication error [None]
